FAERS Safety Report 9590664 (Version 1)
Quarter: 2013Q4

REPORT INFORMATION
  Report Type: Spontaneous
  Country: US (occurrence: US)
  Receive Date: 20131003
  Receipt Date: 20131003
  Transmission Date: 20140711
  Serious: No
  Sender: FDA-Public Use
  Company Number: US-AMGEN-USASP2012078221

PATIENT
  Sex: Female

DRUGS (7)
  1. ENBREL [Suspect]
     Indication: RHEUMATOID ARTHRITIS
     Dosage: 50 MG, WEEKLY
     Route: 058
  2. METHOTREXATE [Concomitant]
     Dosage: 2.5 MG, UNK
  3. FOLGARD [Concomitant]
     Dosage: UNK
  4. NEXIUM                             /01479302/ [Concomitant]
     Dosage: 40 MG, UNK
  5. LIPITOR [Concomitant]
     Dosage: 10 MG, UNK
  6. IRON [Concomitant]
     Dosage: 18 MG, UNK
  7. DIFLUCAN [Concomitant]
     Dosage: 100 MG, UNK

REACTIONS (1)
  - Fungal infection [Unknown]
